FAERS Safety Report 5366054-3 (Version None)
Quarter: 2007Q2

REPORT INFORMATION
  Report Type: 
  Country: None (occurrence: None)
  Receive Date: 20070605
  Receipt Date: 20070202
  Transmission Date: 20071010
  Serious: Yes (Other)
  Sender: FDA-Public Use
  Company Number: SPV1-2007-00568

PATIENT
  Age: 11 Year
  Sex: 0
  Weight: 38.3 kg

DRUGS (3)
  1. DAYTRANA [Suspect]
     Indication: ATTENTION DEFICIT/HYPERACTIVITY DISORDER
     Dosage: 20MG, TRANSDERMAL
     Route: 062
     Dates: start: 20060831, end: 20060901
  2. DAYTRANA [Suspect]
     Indication: ATTENTION DEFICIT/HYPERACTIVITY DISORDER
     Dosage: 20MG, TRANSDERMAL
     Route: 062
     Dates: start: 20060901, end: 20070124
  3. STRATTERA [Concomitant]

REACTIONS (1)
  - URTICARIA [None]
